FAERS Safety Report 6559073-2 (Version None)
Quarter: 2010Q1

REPORT INFORMATION
  Report Type: 
  Country: None (occurrence: None)
  Receive Date: 20100129
  Receipt Date: 20100125
  Transmission Date: 20100710
  Serious: Yes (Other)
  Sender: FDA-Public Use
  Company Number: US-JNJCH-2010002627

PATIENT
  Age: 7 Year
  Sex: Female
  Weight: 23.1 kg

DRUGS (6)
  1. CHILDREN'S ZYRTEC ALLERGY [Suspect]
     Indication: HYPERSENSITIVITY
     Route: 048
  2. ALBUTEROL [Concomitant]
     Indication: ASTHMA
     Dosage: TEXT:2 PUFFS DAILY
     Route: 055
  3. CHILDREN'S ZYRTEC ALLERGY [Suspect]
     Indication: HYPERSENSITIVITY
     Dosage: TEXT:2 TEASPOONS DAILY
     Route: 048
  4. CHILDREN'S BENADRYL ALLERGY [Suspect]
     Indication: HYPERSENSITIVITY
     Route: 048
  5. PREDNISONE TAB [Concomitant]
     Indication: ASTHMA
     Dosage: TEXT:1 TEASPOON DAILY
     Route: 048
  6. FLOVENT [Concomitant]
     Indication: ASTHMA
     Dosage: TEXT:UNSPECIFIED - TWICE DAILY
     Route: 065

REACTIONS (2)
  - BRONCHIAL OEDEMA [None]
  - DYSPNOEA [None]
